FAERS Safety Report 19779742 (Version 1)
Quarter: 2021Q3

REPORT INFORMATION
  Report Type: Spontaneous
  Country: JP (occurrence: JP)
  Receive Date: 20210902
  Receipt Date: 20210902
  Transmission Date: 20211014
  Serious: Yes (Other)
  Sender: FDA-Public Use
  Company Number: JP-PFIZER INC-202101076150

PATIENT
  Age: 9 Decade
  Sex: Female
  Weight: 40 kg

DRUGS (1)
  1. HALCION [Suspect]
     Active Substance: TRIAZOLAM
     Dosage: 0.5 MG
     Route: 048

REACTIONS (5)
  - Insomnia [Unknown]
  - Blood pressure systolic abnormal [Unknown]
  - Feeling abnormal [Unknown]
  - Off label use [Unknown]
  - Product administration interrupted [Unknown]
